FAERS Safety Report 10234421 (Version 6)
Quarter: 2015Q2

REPORT INFORMATION
  Report Type: Report from Study
  Country: DE (occurrence: DE)
  Receive Date: 20140612
  Receipt Date: 20150604
  Transmission Date: 20150821
  Serious: Yes (Hospitalization)
  Sender: FDA-Public Use
  Company Number: DE-ROCHE-1417922

PATIENT
  Age: 63 Year
  Sex: Female
  Weight: 51 kg

DRUGS (12)
  1. FOLSAN [Concomitant]
     Active Substance: FOLIC ACID
  2. DEKRISTOL [Concomitant]
     Active Substance: CHOLECALCIFEROL
  3. TARGIN [Concomitant]
     Active Substance: NALOXONE HYDROCHLORIDE\OXYCODONE HYDROCHLORIDE
  4. ADALIMUMAB [Concomitant]
     Active Substance: ADALIMUMAB
     Route: 065
     Dates: start: 20140603
  5. TOCILIZUMAB [Suspect]
     Active Substance: TOCILIZUMAB
     Indication: RHEUMATOID ARTHRITIS
     Route: 042
     Dates: start: 20131220, end: 20140313
  6. METHOTREXATE [Suspect]
     Active Substance: METHOTREXATE
     Indication: RHEUMATOID ARTHRITIS
     Route: 065
     Dates: end: 201404
  7. IBUPROFEN. [Concomitant]
     Active Substance: IBUPROFEN
  8. ZOPICLON [Concomitant]
     Active Substance: ZOPICLONE
  9. PANTOPRAZOLE SODIUM. [Concomitant]
     Active Substance: PANTOPRAZOLE SODIUM
  10. MACROGOL [Concomitant]
     Active Substance: POLYETHYLENE GLYCOLS
  11. OXYGESIC [Concomitant]
     Active Substance: OXYCODONE
  12. DOXEPIN [Concomitant]
     Active Substance: DOXEPIN

REACTIONS (3)
  - Raynaud^s phenomenon [Unknown]
  - Stress fracture [Not Recovered/Not Resolved]
  - Drug ineffective [Unknown]

NARRATIVE: CASE EVENT DATE: 20140407
